FAERS Safety Report 4620042-0 (Version None)
Quarter: 2005Q1

REPORT INFORMATION
  Report Type: 
  Country: None (occurrence: None)
  Receive Date: 20050324
  Receipt Date: 20050308
  Transmission Date: 20050727
  Serious: Yes (Death)
  Sender: FDA-Public Use
  Company Number: GB-2005-003657

PATIENT
  Age: 67 Year
  Sex: Male

DRUGS (5)
  1. FLUDARABINE PHOSPHATE [Suspect]
     Dosage: SEE IMAGE
     Route: 042
     Dates: end: 19971101
  2. FLUDARABINE PHOSPHATE [Suspect]
     Dosage: SEE IMAGE
     Route: 042
     Dates: end: 19980601
  3. CYCLOPHOSPHAMIDE [Suspect]
     Dosage: 250 MG/M2
     Dates: end: 19980601
  4. MITOXANTRONE [Suspect]
     Dosage: 5 MG/M2
     Dates: end: 19980601
  5. METHYLPREDNISOLONE [Suspect]
     Dosage: HIGH DOSE

REACTIONS (2)
  - CHRONIC LYMPHOCYTIC LEUKAEMIA TRANSFORMATION [None]
  - DRUG EFFECT DECREASED [None]
